FAERS Safety Report 5445208-1 (Version None)
Quarter: 2007Q3

REPORT INFORMATION
  Report Type: 
  Country: None (occurrence: None)
  Receive Date: 20070906
  Receipt Date: 20070827
  Transmission Date: 20080115
  Serious: Yes (Other)
  Sender: FDA-Public Use
  Company Number: DE-PFIZER INC-2007063185

PATIENT
  Sex: Female

DRUGS (19)
  1. SU-011,248 [Suspect]
     Indication: METASTATIC RENAL CELL CARCINOMA
     Route: 048
     Dates: start: 20051220, end: 20060814
  2. METOPROLOL SUCCINATE [Concomitant]
     Indication: HYPERTENSION
     Dates: start: 20060308, end: 20060316
  3. EBRANTIL [Concomitant]
     Indication: HYPERTENSION
     Dates: start: 20060328
  4. METOPROLOL SUCCINATE [Concomitant]
     Indication: HYPERTENSION
     Dates: start: 20060317
  5. NORVASC [Concomitant]
     Indication: HYPERTENSION
     Dates: start: 20060317, end: 20060522
  6. FUROSEMIDE [Concomitant]
     Indication: HYPERTENSION
     Dates: start: 20060410, end: 20060901
  7. METOCLOPRAMIDE [Concomitant]
     Indication: NAUSEA
     Dates: start: 20060806, end: 20060819
  8. METOCLOPRAMIDE [Concomitant]
     Dates: start: 20060117, end: 20060120
  9. AMLODIPINE [Concomitant]
     Indication: HYPERTENSION
  10. LEVOTHYROXINE SODIUM [Concomitant]
     Indication: HYPOTHYROIDISM
     Dates: start: 20030201
  11. OVESTIN [Concomitant]
     Indication: HORMONE REPLACEMENT THERAPY
     Dates: start: 20041012
  12. GLADEM [Concomitant]
     Indication: DEPRESSION
  13. NASENOEL-RATIOPHARM [Concomitant]
     Indication: STOMATITIS
     Dates: start: 20060117, end: 20060101
  14. NEXIUM [Concomitant]
     Indication: DYSPEPSIA
     Dates: start: 20060111, end: 20060120
  15. NEXIUM [Concomitant]
     Dates: start: 20060212, end: 20060814
  16. LACTULOSE [Concomitant]
     Indication: CONSTIPATION
     Dates: start: 20060127, end: 20060214
  17. CYNT [Concomitant]
     Indication: HYPERTENSION
     Dates: start: 20060320, end: 20060501
  18. CYNT [Concomitant]
     Dates: start: 20060806, end: 20060819
  19. PANTOPRAZOLE SODIUM [Concomitant]
     Indication: DYSPEPSIA
     Dates: start: 20060816, end: 20060828

REACTIONS (1)
  - ALVEOLITIS [None]
